FAERS Safety Report 15627835 (Version 1)
Quarter: 2018Q4

REPORT INFORMATION
  Report Type: Other
  Country: US (occurrence: US)
  Receive Date: 20181116
  Receipt Date: 20181116
  Transmission Date: 20190205
  Serious: Yes (Death, Hospitalization)
  Sender: FDA-Public Use
  Company Number: US-ACTELION-A-CH2018-181567

PATIENT
  Age: 54 Year
  Sex: Female

DRUGS (7)
  1. BOSENTAN. [Suspect]
     Active Substance: BOSENTAN
     Indication: PULMONARY HYPERTENSION
     Route: 048
  2. WARFARIN [Concomitant]
     Active Substance: WARFARIN
  3. OXYGEN. [Concomitant]
     Active Substance: OXYGEN
  4. HYDROXYUREA. [Concomitant]
     Active Substance: HYDROXYUREA
  5. ENOXAPARIN [Concomitant]
     Active Substance: ENOXAPARIN
  6. TREPROSTINIL. [Concomitant]
     Active Substance: TREPROSTINIL
     Dosage: MAXIMAL 20 NG/KG, PER MIN
     Route: 058
  7. RIOCIGUAT. [Concomitant]
     Active Substance: RIOCIGUAT
     Dosage: 2.5 MG, TID

REACTIONS (7)
  - Pericardial effusion [Unknown]
  - Pulmonary hypertension [Unknown]
  - Disease progression [Unknown]
  - Dyspnoea [Fatal]
  - Vitreous haemorrhage [Unknown]
  - Pulmonary embolism [Unknown]
  - Right ventricular failure [Fatal]
